FAERS Safety Report 12758289 (Version 1)
Quarter: 2016Q3

REPORT INFORMATION
  Report Type: Spontaneous
  Country: US (occurrence: US)
  Receive Date: 20160916
  Receipt Date: 20160916
  Transmission Date: 20161109
  Serious: Yes (Disabling)
  Sender: FDA-Public Use
  Company Number: None

PATIENT
  Age: 60 Year
  Sex: Male
  Weight: 96.75 kg

DRUGS (20)
  1. IVIG INFUSIONS [Concomitant]
  2. WELCHOL [Concomitant]
     Active Substance: COLESEVELAM HYDROCHLORIDE
  3. NEVRO HIGH FREQUENCY SPINAL STIMULATOR [Concomitant]
  4. HUMAN IMMUNE GLOBULIN 10% [Suspect]
     Active Substance: HUMAN IMMUNOGLOBULIN G
     Indication: CHRONIC INFLAMMATORY DEMYELINATING POLYRADICULONEUROPATHY
     Dosage: OTHER STRENGTH:;OTHER DOSE:BOTTLE;OTHER FREQUENCY:EVERY 3 WEEKS;OTHER ROUTE:
     Route: 042
     Dates: start: 20160728, end: 20160728
  5. LYRICA [Concomitant]
     Active Substance: PREGABALIN
  6. PROBIOTICS [Concomitant]
     Active Substance: PROBIOTICS NOS
  7. TRIGGER POINT STEROID INJECTIONS [Concomitant]
  8. CENTRUM SILVER + VITAMINS [Concomitant]
  9. METHYLCOBALAMIN (METHYL B12) [Concomitant]
  10. HUMAN IMMUNE GLOBULIN 10% [Suspect]
     Active Substance: HUMAN IMMUNOGLOBULIN G
     Indication: CHRONIC INFLAMMATORY DEMYELINATING POLYRADICULONEUROPATHY
     Dosage: OTHER STRENGTH:;OTHER DOSE:BOTTLE;OTHER FREQUENCY:EVERY 3 WEEKS;OTHER ROUTE:
     Route: 042
     Dates: start: 20160728, end: 20160728
  11. MELOXICAM. [Concomitant]
     Active Substance: MELOXICAM
  12. ANDROGEL [Concomitant]
     Active Substance: TESTOSTERONE
  13. PERCOCET [Concomitant]
     Active Substance: ACETAMINOPHEN\OXYCODONE HYDROCHLORIDE
  14. GENERAL METAMUCIL [Concomitant]
  15. BIO-FLOW IV PORT [Concomitant]
  16. CLORAZEPATE (TRANXENE) [Concomitant]
  17. LIDOCAINE. [Concomitant]
     Active Substance: LIDOCAINE
  18. IMODIUM [Concomitant]
     Active Substance: LOPERAMIDE HYDROCHLORIDE
  19. BACLOFEN. [Concomitant]
     Active Substance: BACLOFEN
  20. LAMOTRIGINE (LAMICTAL) [Concomitant]

REACTIONS (2)
  - Complications of transplant surgery [None]
  - Adverse event [None]

NARRATIVE: CASE EVENT DATE: 20160728
